FAERS Safety Report 4831503-3 (Version None)
Quarter: 2005Q4

REPORT INFORMATION
  Report Type: 
  Country: None (occurrence: None)
  Receive Date: 20051114
  Receipt Date: 20051103
  Transmission Date: 20060501
  Serious: Yes (Disabling)
  Sender: FDA-Public Use
  Company Number: 2005126667

PATIENT
  Age: 61 Year
  Sex: Male
  Weight: 71 kg

DRUGS (8)
  1. CAMPTOSAR [Suspect]
     Indication: RECTAL CANCER METASTATIC
     Dosage: 665 MG (1 IN 3 WK), INTRAVENOUS
     Route: 042
     Dates: start: 20050307
  2. CETUXIMAB [Concomitant]
  3. ATROPINE SULFATE [Concomitant]
  4. PRIMPERAN TAB [Concomitant]
  5. SOLU-MEDROL [Concomitant]
  6. ZOFRAN [Concomitant]
  7. ZOMETA [Concomitant]
  8. FLUCONAZOLE [Concomitant]

REACTIONS (7)
  - DIARRHOEA [None]
  - DIFFICULTY IN WALKING [None]
  - DRY SKIN [None]
  - MUCOSAL INFLAMMATION [None]
  - PALMAR-PLANTAR ERYTHRODYSAESTHESIA SYNDROME [None]
  - SKIN EXFOLIATION [None]
  - STOMATITIS [None]
